FAERS Safety Report 8457001-6 (Version None)
Quarter: 2012Q2

REPORT INFORMATION
  Report Type: 
  Country: None (occurrence: None)
  Receive Date: 20120621
  Receipt Date: 20120608
  Transmission Date: 20120825
  Serious: No
  Sender: FDA-Public Use
  Company Number: US-ASTRAZENECA-2012SE38739

PATIENT
  Age: 81 Year
  Sex: Female
  Weight: 76.7 kg

DRUGS (2)
  1. CRESTOR [Suspect]
     Indication: BLOOD CHOLESTEROL ABNORMAL
     Route: 048
  2. SEVEN MEDICINES A DAY [Concomitant]

REACTIONS (2)
  - DIZZINESS [None]
  - INTENTIONAL DRUG MISUSE [None]
